FAERS Safety Report 6633775-1 (Version None)
Quarter: 2010Q1

REPORT INFORMATION
  Report Type: 
  Country: None (occurrence: None)
  Receive Date: 20100315
  Receipt Date: 20100308
  Transmission Date: 20100710
  Serious: Yes (Other)
  Sender: FDA-Public Use
  Company Number: US-RB-004579-10

PATIENT
  Age: 66 Year
  Sex: Female
  Weight: 49.5 kg

DRUGS (3)
  1. MUCINEX DM [Suspect]
     Dosage: TOOK ONE TABLET EVERY 12 HOURS FOR 2 DAYS
     Route: 048
     Dates: start: 20100303
  2. HYDROCHLOROTHIAZIDE [Concomitant]
  3. LIZINOPRIL [Concomitant]

REACTIONS (1)
  - BLOOD PRESSURE INCREASED [None]
